FAERS Safety Report 21633413 (Version 1)
Quarter: 2022Q4

REPORT INFORMATION
  Report Type: Spontaneous
  Country: BE (occurrence: BR)
  Receive Date: 20221123
  Receipt Date: 20221123
  Transmission Date: 20230112
  Serious: Yes (Other)
  Sender: FDA-Public Use
  Company Number: BE-PFIZER INC-16331

PATIENT
  Age: 18 Year
  Sex: Male

DRUGS (3)
  1. ETOPOSIDE [Suspect]
     Active Substance: ETOPOSIDE
     Indication: Testis cancer
     Dosage: 100 MG/M2, DAYS 1-5, FREQ: PER_CYCLE
     Route: 042
  2. CISPLATIN [Suspect]
     Active Substance: CISPLATIN
     Dosage: 20 MG/M2, DAYS 1-5, FREQ: PER_CYCLE
     Route: 042
  3. BLEOMYCIN SULFATE [Suspect]
     Active Substance: BLEOMYCIN SULFATE
     Indication: Testis cancer
     Dosage: 30 IU, DAYS 1, 8 AND 15, FREQ: PER_CYCLE
     Route: 042

REACTIONS (3)
  - Acute kidney injury [Recovered/Resolved]
  - Renal vein thrombosis [Recovered/Resolved]
  - Deep vein thrombosis [Recovered/Resolved]
